FAERS Safety Report 8833131 (Version 1)
Quarter: 2012Q4

REPORT INFORMATION
  Report Type: 
  Country: JP (occurrence: JP)
  Receive Date: 20121010
  Receipt Date: 20121010
  Transmission Date: 20130627
  Serious: Yes (Hospitalization)
  Sender: FDA-Public Use
  Company Number: US-ASTELLAS-2012US009988

PATIENT
  Age: 64 Year
  Sex: Male
  Weight: 56 kg

DRUGS (24)
  1. TARCEVA [Suspect]
     Indication: LUNG NEOPLASM MALIGNANT
     Dosage: 1 DF, bid
     Route: 048
     Dates: start: 20120502, end: 20120620
  2. TARCEVA [Suspect]
     Dosage: UNK
     Route: 048
     Dates: start: 20120628, end: 20120711
  3. TARCEVA [Suspect]
     Dosage: 1 DF, qod
     Route: 048
     Dates: start: 20120712, end: 20120723
  4. TARCEVA [Suspect]
     Dosage: Daily
     Route: 048
     Dates: start: 20120724, end: 20120726
  5. TARCEVA [Suspect]
     Dosage: 1 DF, qod
     Route: 048
     Dates: start: 20120727, end: 20120731
  6. BACTRIM [Suspect]
     Indication: LUNG NEOPLASM MALIGNANT
     Dosage: 1 DF, UID/QD
     Route: 048
     Dates: start: 20120510, end: 20120620
  7. PHENOBAL                             /00023201/ [Suspect]
     Indication: CONVULSION
     Dosage: 100 mg, UID/QD
     Route: 030
     Dates: start: 20120627, end: 20120706
  8. PHENOBAL /00023201/ [Suspect]
     Dosage: UNK
     Route: 065
     Dates: start: 20120724
  9. DENOSUMAB [Suspect]
     Indication: LUNG NEOPLASM MALIGNANT
     Dosage: UNK
     Route: 065
  10. JANUVIA [Concomitant]
     Indication: PRODUCT USED FOR UNKNOWN INDICATION
     Dosage: UNK
     Route: 065
     Dates: start: 20120620
  11. JANUVIA [Concomitant]
     Dosage: UNK
     Route: 065
     Dates: start: 20120704
  12. LENDEM [Concomitant]
     Indication: PRODUCT USED FOR UNKNOWN INDICATION
     Dosage: UNK
     Route: 065
     Dates: start: 20120620
  13. LENDEM [Concomitant]
     Dosage: UNK
     Route: 065
     Dates: start: 20120704
  14. RINDERON                           /00008501/ [Concomitant]
     Indication: PRODUCT USED FOR UNKNOWN INDICATION
     Dosage: UNK
     Route: 048
     Dates: start: 20120620
  15. RINDERON                           /00008501/ [Concomitant]
     Dosage: UNK
     Route: 048
     Dates: start: 20120704
  16. DEPAKENE-R [Concomitant]
     Indication: PRODUCT USED FOR UNKNOWN INDICATION
     Dosage: UNK
     Route: 048
     Dates: start: 20120620, end: 20120620
  17. MINOMYCIN [Concomitant]
     Indication: PRODUCT USED FOR UNKNOWN INDICATION
     Dosage: UNK
     Route: 048
     Dates: start: 20120620, end: 20120620
  18. URSO                               /00465701/ [Concomitant]
     Indication: PRODUCT USED FOR UNKNOWN INDICATION
     Dosage: UNK
     Route: 048
     Dates: start: 20120620
  19. MAGMITT [Concomitant]
     Indication: PRODUCT USED FOR UNKNOWN INDICATION
     Dosage: UNK
     Route: 048
     Dates: start: 20120620, end: 20120623
  20. CYTOTEC [Concomitant]
     Indication: PRODUCT USED FOR UNKNOWN INDICATION
     Dosage: UNK
     Route: 048
     Dates: start: 20120620, end: 20120620
  21. DEPAKENE                           /00228501/ [Concomitant]
     Indication: PRODUCT USED FOR UNKNOWN INDICATION
     Dosage: 400 mg, UID/QD
     Route: 048
     Dates: start: 20120704, end: 20120706
  22. DEPAKENE                           /00228501/ [Concomitant]
     Dosage: 1200 mg, UID/QD
     Route: 048
     Dates: start: 20120707
  23. CODEINE [Concomitant]
     Indication: PRODUCT USED FOR UNKNOWN INDICATION
     Dosage: UNK
     Route: 048
     Dates: start: 20120704
  24. GLYCEREB [Concomitant]
     Indication: PRODUCT USED FOR UNKNOWN INDICATION
     Dosage: UNK
     Route: 041
     Dates: start: 20120704

REACTIONS (7)
  - Inappropriate schedule of drug administration [Unknown]
  - Agranulocytosis [Unknown]
  - Rash [Recovering/Resolving]
  - Hepatic function abnormal [Recovering/Resolving]
  - Hepatitis C antibody positive [Unknown]
  - Depressed level of consciousness [Unknown]
  - Pyrexia [Unknown]
